FAERS Safety Report 16597186 (Version 1)
Quarter: 2019Q3

REPORT INFORMATION
  Report Type: Report from Study
  Country: FR (occurrence: FR)
  Receive Date: 20190719
  Receipt Date: 20190719
  Transmission Date: 20191004
  Serious: Yes (Death, Other)
  Sender: FDA-Public Use
  Company Number: FR-KYOWAKIRIN-2019BKK011319

PATIENT

DRUGS (5)
  1. CORTANCYL [Suspect]
     Active Substance: PREDNISONE
     Indication: CUTANEOUS T-CELL LYMPHOMA STAGE III
     Dosage: 40 MG PER DAY
     Route: 048
     Dates: start: 201811
  2. ZOPICLONE [Concomitant]
     Active Substance: ZOPICLONE
     Indication: INSOMNIA
     Dosage: 7.5 MG PER DAY
     Route: 048
     Dates: start: 201904
  3. POTELIGEO [Suspect]
     Active Substance: MOGAMULIZUMAB-KPKC
     Indication: CUTANEOUS T-CELL LYMPHOMA STAGE III
     Dosage: 1 MG/KG (55 MG)
     Route: 042
     Dates: start: 20190515, end: 20190515
  4. OXYNORM [Concomitant]
     Active Substance: OXYCODONE HYDROCHLORIDE
     Indication: PAIN
     Dosage: 10 MG, TID
     Route: 048
     Dates: start: 201904
  5. ATARAX [Concomitant]
     Active Substance: HYDROXYZINE HYDROCHLORIDE
     Indication: PRURITUS
     Dosage: 25 MG, TID
     Route: 048
     Dates: start: 201904

REACTIONS (3)
  - Hyperkalaemia [Fatal]
  - Staphylococcal infection [Recovered/Resolved]
  - Erysipelas [Recovered/Resolved]

NARRATIVE: CASE EVENT DATE: 20190520
